FAERS Safety Report 19063784 (Version 1)
Quarter: 2021Q1

REPORT INFORMATION
  Report Type: Spontaneous
  Country: US (occurrence: US)
  Receive Date: 20210326
  Receipt Date: 20210326
  Transmission Date: 20210420
  Serious: Yes (Hospitalization, Other)
  Sender: FDA-Public Use
  Company Number: US-GW PHARMA-202103USGW01280

PATIENT

DRUGS (1)
  1. EPIDIOLEX [Suspect]
     Active Substance: CANNABIDIOL
     Indication: LENNOX-GASTAUT SYNDROME
     Dosage: 10.10 MG/KG/DAY, 550 MILLIGRAM, BID
     Route: 048
     Dates: start: 20190521

REACTIONS (4)
  - Seizure [Unknown]
  - Anger [Unknown]
  - Aspiration [Unknown]
  - Fall [Unknown]
